FAERS Safety Report 5044292-7 (Version None)
Quarter: 2006Q2

REPORT INFORMATION
  Report Type: 
  Country: None (occurrence: None)
  Receive Date: 20060629
  Receipt Date: 20060619
  Transmission Date: 20061013
  Serious: Yes (Death)
  Sender: FDA-Public Use
  Company Number: 2006078145

PATIENT
  Sex: Male

DRUGS (22)
  1. ATORVASTATIN CALCIUM [Suspect]
     Indication: ILL-DEFINED DISORDER
  2. TEMAZEPAM [Suspect]
     Indication: ILL-DEFINED DISORDER
  3. SPIRONOLACTONE [Suspect]
     Indication: ILL-DEFINED DISORDER
  4. DILTIAZEM [Suspect]
     Indication: ILL-DEFINED DISORDER
  5. BECLOMETHASONE (BECLOMETASONE) [Suspect]
     Indication: ILL-DEFINED DISORDER
     Dosage: INHALATION
     Route: 055
  6. COMBIVENT [Suspect]
     Indication: CHRONIC OBSTRUCTIVE PULMONARY DISEASE
     Dosage: INHALATION
     Route: 055
     Dates: start: 20030617, end: 20040513
  7. FRUMIL (AMILORIDE HYDROCHLORIDE, FUROSEMIDE) [Concomitant]
  8. FUROSEMIDE [Concomitant]
  9. DEXAMETHASONE [Concomitant]
  10. DOSULEPIN (DOSULEPIN) [Concomitant]
  11. GAVISCON [Concomitant]
  12. LACTULOSE [Concomitant]
  13. LANSOPRAZOLE [Concomitant]
  14. METOCLOPRAMIDE [Concomitant]
  15. NITROLINGUAL (GLYCERYL TRINITRATE) [Concomitant]
  16. NOZINAN (LEVOMEPROMAZINE) [Concomitant]
  17. OXYCODONE (OXYCODONE) [Concomitant]
  18. OXYGEN (OXYGEN) [Concomitant]
  19. SALBUTAMOL (SALBUTAMOL) [Concomitant]
  20. SYMBICORT (BUDESONIDE, FORMOTEROL FUMARATE) [Concomitant]
  21. SPIRIVA [Concomitant]
  22. ASPIRIN [Concomitant]

REACTIONS (1)
  - MESOTHELIOMA [None]
